FAERS Safety Report 25363204 (Version 1)
Quarter: 2025Q2

REPORT INFORMATION
  Report Type: Spontaneous
  Country: US (occurrence: None)
  Receive Date: 20250526
  Receipt Date: 20250526
  Transmission Date: 20250716
  Serious: Yes (Other)
  Sender: FDA-CTU
  Company Number: None

PATIENT
  Age: 59 Year
  Sex: Female
  Weight: 112.5 kg

DRUGS (3)
  1. COSENTYX [Suspect]
     Active Substance: SECUKINUMAB
  2. BUPROPION [Concomitant]
     Active Substance: BUPROPION
  3. SPIRONOLACTONE [Concomitant]
     Active Substance: SPIRONOLACTONE

REACTIONS (5)
  - Skin candida [None]
  - Rash [None]
  - Eczema [None]
  - Discomfort [None]
  - Conjunctivitis [None]

NARRATIVE: CASE EVENT DATE: 20250501
